FAERS Safety Report 7380535-2 (Version None)
Quarter: 2011Q1

REPORT INFORMATION
  Report Type: 
  Country: None (occurrence: None)
  Receive Date: 20110321
  Receipt Date: 20101231
  Transmission Date: 20110831
  Serious: Yes (Death)
  Sender: FDA-Public Use
  Company Number: AUR-APL-2011-00424

PATIENT
  Age: 17 Year
  Sex: Male

DRUGS (6)
  1. FEXOFENADINE [Suspect]
  2. METHADONE [Suspect]
  3. LOVASTATIN [Suspect]
  4. VENLAFAXINE HCL [Suspect]
  5. GABAPENTIN [Suspect]
  6. PROPRANOLOL [Suspect]

REACTIONS (5)
  - TOXICITY TO VARIOUS AGENTS [None]
  - RESPIRATORY ARREST [None]
  - COMPLETED SUICIDE [None]
  - INTENTIONAL DRUG MISUSE [None]
  - CARDIAC ARREST [None]
